FAERS Safety Report 8726890 (Version 3)
Quarter: 2012Q4

REPORT INFORMATION
  Report Type: 
  Country: JP (occurrence: JP)
  Receive Date: 20120816
  Receipt Date: 20120914
  Transmission Date: 20130627
  Serious: Yes (Other)
  Sender: FDA-Public Use
  Company Number: JP-B.I. PHARMACEUTICALS,INC./RIDGEFIELD-2012-BP-17971NB

PATIENT
  Age: 60 Year
  Sex: Male

DRUGS (7)
  1. PRAZAXA [Suspect]
     Indication: ATRIAL FIBRILLATION
     Dosage: 300 mg
     Route: 048
     Dates: start: 20120516, end: 20120712
  2. KLARICID [Suspect]
     Route: 065
  3. ASVERIN (TIPEPIDINE HIBENZATE) [Suspect]
     Route: 065
  4. CARBOCYSTEINE [Suspect]
     Route: 065
  5. CLINIDIPINE [Concomitant]
     Indication: HYPERTENSION
     Dosage: 10 mg
     Route: 065
     Dates: start: 20100416, end: 20120706
  6. PREMINENT [Concomitant]
     Indication: HYPERTENSION
     Route: 065
     Dates: start: 20110602, end: 20120625
  7. ECARD [Concomitant]
     Indication: HYPERTENSION
     Route: 065
     Dates: start: 20120625

REACTIONS (2)
  - Interstitial lung disease [Recovered/Resolved]
  - Drug eruption [Recovered/Resolved]
